FAERS Safety Report 10580246 (Version 2)
Quarter: 2014Q4

REPORT INFORMATION
  Report Type: Spontaneous
  Country: US (occurrence: US)
  Receive Date: 20141112
  Receipt Date: 20141202
  Transmission Date: 20150529
  Serious: Yes (Hospitalization, Other)
  Sender: FDA-Public Use
  Company Number: US-PFIZER INC-2014308014

PATIENT
  Age: 70 Year
  Sex: Female

DRUGS (1)
  1. PREPARATION H SUPPOSITORY [Suspect]
     Active Substance: COCOA BUTTER\PHENYLEPHRINE HYDROCHLORIDE
     Indication: HAEMORRHOIDS
     Dosage: UNK, AS NEEDED (NOT DAILY)

REACTIONS (3)
  - Brain neoplasm [Unknown]
  - Constipation [Unknown]
  - Haemorrhoids [Unknown]
